FAERS Safety Report 12521550 (Version 2)
Quarter: 2016Q3

REPORT INFORMATION
  Report Type: Spontaneous
  Country: US (occurrence: US)
  Receive Date: 20160701
  Receipt Date: 20160907
  Transmission Date: 20161109
  Serious: No
  Sender: FDA-Public Use
  Company Number: US-JNJFOC-20160619939

PATIENT
  Sex: Female
  Weight: 58.97 kg

DRUGS (2)
  1. DURAGESIC [Suspect]
     Active Substance: FENTANYL
     Indication: SPINAL COLUMN STENOSIS
     Route: 062
     Dates: start: 201605
  2. DURAGESIC [Suspect]
     Active Substance: FENTANYL
     Indication: SPINAL COLUMN STENOSIS
     Route: 062
     Dates: start: 201601, end: 201605

REACTIONS (7)
  - Back injury [Not Recovered/Not Resolved]
  - Wrong technique in product usage process [Not Recovered/Not Resolved]
  - Pain in extremity [Unknown]
  - Product adhesion issue [Not Recovered/Not Resolved]
  - Drug ineffective [Unknown]
  - Musculoskeletal pain [Unknown]
  - Bedridden [Unknown]

NARRATIVE: CASE EVENT DATE: 2016
